FAERS Safety Report 9940257 (Version 1)
Quarter: 2014Q1

REPORT INFORMATION
  Report Type: Report from Study
  Country: US (occurrence: US)
  Receive Date: 20140303
  Receipt Date: 20140303
  Transmission Date: 20141002
  Serious: No
  Sender: FDA-Public Use
  Company Number: US-ABBVIE-13P-163-1035353-00

PATIENT
  Age: 49 Year
  Sex: Female

DRUGS (11)
  1. HUMIRA [Suspect]
     Indication: PSORIASIS
     Route: 058
     Dates: start: 20130104, end: 20130104
  2. HUMIRA [Suspect]
     Route: 058
     Dates: end: 20130111
  3. ZOCOR [Concomitant]
     Indication: BLOOD CHOLESTEROL INCREASED
     Dosage: AT BEDTIME
  4. ASPIRIN [Concomitant]
     Indication: ANTICOAGULANT THERAPY
  5. PRILOSEC [Concomitant]
     Indication: GASTROOESOPHAGEAL REFLUX DISEASE
     Dosage: IN AM
  6. PRIMIDONE [Concomitant]
     Indication: ESSENTIAL TREMOR
  7. PRENATAL VITAMINS [Concomitant]
     Indication: VITAMIN SUPPLEMENTATION
  8. CELEXA [Concomitant]
     Indication: DEPRESSION
  9. TIVIZ [Concomitant]
     Indication: URINARY INCONTINENCE
  10. FLEXERIL [Concomitant]
     Indication: NECK PAIN
  11. ATIVAN [Concomitant]
     Indication: ANXIETY

REACTIONS (10)
  - Memory impairment [Not Recovered/Not Resolved]
  - Abnormal behaviour [Not Recovered/Not Resolved]
  - Concussion [Not Recovered/Not Resolved]
  - Fall [Recovering/Resolving]
  - Joint injury [Not Recovered/Not Resolved]
  - Arthralgia [Not Recovered/Not Resolved]
  - Disorientation [Recovered/Resolved]
  - Headache [Not Recovered/Not Resolved]
  - Neck pain [Not Recovered/Not Resolved]
  - Dizziness [Unknown]
